FAERS Safety Report 4356717-0 (Version None)
Quarter: 2004Q2

REPORT INFORMATION
  Report Type: 
  Country: None (occurrence: None)
  Receive Date: 20040507
  Receipt Date: 20040429
  Transmission Date: 20050107
  Serious: Yes (Hospitalization)
  Sender: FDA-Public Use
  Company Number: STA-AE-04-MTX-177

PATIENT
  Age: 28 Year
  Sex: Female

DRUGS (10)
  1. METHOTREXATE [Suspect]
     Indication: RHEUMATOID ARTHRITIS
     Dosage: 5 MG 1X PER 1 WK, ORAL
     Route: 048
     Dates: start: 20001220
  2. REMICADE [Suspect]
     Indication: RHEUMATOID ARTHRITIS
     Dosage: 300 MG 1X PER 8 WK, INTRAVENOUS
     Route: 042
     Dates: start: 20021125
  3. AZULFIDINE [Concomitant]
  4. MELOXICAM (MELOXICAM) [Concomitant]
  5. FOLIC ACID [Concomitant]
  6. DIOVAN [Concomitant]
  7. LASIX [Concomitant]
  8. POTASSIUM CHLORIDE [Concomitant]
  9. PLAQUENIL [Concomitant]
  10. BEXTRA [Concomitant]

REACTIONS (2)
  - ABSCESS [None]
  - CELLULITIS [None]
